FAERS Safety Report 8375734-7 (Version None)
Quarter: 2012Q2

REPORT INFORMATION
  Report Type: 
  Country: None (occurrence: None)
  Receive Date: 20120515
  Receipt Date: 20120515
  Transmission Date: 20120825
  Serious: Yes (Death)
  Sender: FDA-Public Use
  Company Number: None

PATIENT
  Age: 43 Year
  Sex: Male
  Weight: 122.4712 kg

DRUGS (4)
  1. OXALIPLATIN [Suspect]
     Dosage: OXALIPLATIN SEVERAL , ONCE X2 WEEKS INFUSION
     Route: 042
     Dates: start: 20110621
  2. AVASTIN [Suspect]
     Dosage: AVASTIN SEVERAL, ONCE X2 WEEKS INFUSION
     Route: 042
     Dates: start: 20110621
  3. EVEROLIMUS 5 MG [Suspect]
     Indication: NEOPLASM MALIGNANT
     Dates: start: 20110425
  4. CAPECITABINE [Suspect]
     Dates: start: 20110621

REACTIONS (1)
  - NEOPLASM [None]
